FAERS Safety Report 9867621 (Version 2)
Quarter: 2014Q1

REPORT INFORMATION
  Report Type: Spontaneous
  Country: MX (occurrence: MX)
  Receive Date: 20140204
  Receipt Date: 20140204
  Transmission Date: 20141002
  Serious: Yes (Disabling, Other)
  Sender: FDA-Public Use
  Company Number: MX-009507513-1312MEX012642

PATIENT
  Age: 37 Year
  Sex: Female

DRUGS (2)
  1. IMPLANON [Suspect]
     Indication: CONTRACEPTION
     Dosage: IMPLANT FOR THREE YEARS
     Route: 030
     Dates: start: 20131216
  2. IMPLANON [Suspect]
     Dosage: IMPLANT FOR THREE YEARS
     Route: 059
     Dates: start: 20131216, end: 20131223

REACTIONS (17)
  - Mobility decreased [Recovering/Resolving]
  - Surgery [Unknown]
  - Local swelling [Not Recovered/Not Resolved]
  - Overdose [Recovered/Resolved]
  - Device deployment issue [Not Recovered/Not Resolved]
  - Pain in extremity [Not Recovered/Not Resolved]
  - Injection site pruritus [Not Recovered/Not Resolved]
  - Medical device complication [Not Recovered/Not Resolved]
  - Pain in extremity [Unknown]
  - Pruritus [Unknown]
  - Incorrect route of drug administration [Unknown]
  - Device difficult to use [Recovered/Resolved]
  - Pain [Not Recovered/Not Resolved]
  - Movement disorder [Not Recovered/Not Resolved]
  - Muscle spasms [Not Recovered/Not Resolved]
  - Muscular weakness [Not Recovered/Not Resolved]
  - Surgery [Unknown]
